FAERS Safety Report 13066057 (Version 2)
Quarter: 2017Q1

REPORT INFORMATION
  Report Type: Spontaneous
  Country: US (occurrence: US)
  Receive Date: 20161227
  Receipt Date: 20170322
  Transmission Date: 20170428
  Serious: Yes (Death, Hospitalization, Other)
  Sender: FDA-Public Use
  Company Number: US-BRISTOL-MYERS SQUIBB COMPANY-BMS-2016-108938

PATIENT
  Age: 58 Year
  Sex: Female

DRUGS (2)
  1. OPDIVO [Suspect]
     Active Substance: NIVOLUMAB
     Indication: IRIS MELANOMA
     Dosage: 1 MG/KG, UNK
     Route: 042
     Dates: start: 20161207
  2. YERVOY [Suspect]
     Active Substance: IPILIMUMAB
     Indication: IRIS MELANOMA
     Dosage: 3 MG/KG, Q3WK
     Route: 042
     Dates: start: 20161207

REACTIONS (1)
  - Drug-induced liver injury [Fatal]

NARRATIVE: CASE EVENT DATE: 20161213
